FAERS Safety Report 10727030 (Version 1)
Quarter: 2015Q1

REPORT INFORMATION
  Report Type: Spontaneous
  Country: US (occurrence: None)
  Receive Date: 20150120
  Receipt Date: 20150120
  Transmission Date: 20150721
  Serious: Yes (Hospitalization)
  Sender: FDA-Public Use
  Company Number: None

PATIENT
  Age: 91 Year
  Sex: Female

DRUGS (5)
  1. LASIX [Concomitant]
     Active Substance: FUROSEMIDE
  2. PEPCID [Concomitant]
     Active Substance: FAMOTIDINE
  3. LISINOPRIL. [Concomitant]
     Active Substance: LISINOPRIL
  4. COUMADIN [Concomitant]
     Active Substance: WARFARIN SODIUM
  5. MOXIFLOXACIN [Suspect]
     Active Substance: MOXIFLOXACIN
     Route: 048

REACTIONS (1)
  - Stevens-Johnson syndrome [None]

NARRATIVE: CASE EVENT DATE: 20141229
